FAERS Safety Report 6493296-6 (Version None)
Quarter: 2009Q4

REPORT INFORMATION
  Report Type: 
  Country: None (occurrence: None)
  Receive Date: 20091214
  Receipt Date: 20091203
  Transmission Date: 20100525
  Serious: No
  Sender: FDA-Public Use
  Company Number: US-JNJFOC-20091202113

PATIENT
  Sex: Female
  Weight: 86.18 kg

DRUGS (2)
  1. DURAGESIC-100 [Suspect]
     Indication: PAIN
     Route: 062
     Dates: start: 20050101, end: 20091126
  2. DURAGESIC-100 [Suspect]
     Route: 062
     Dates: start: 20091126

REACTIONS (4)
  - HEADACHE [None]
  - INCORRECT DRUG ADMINISTRATION RATE [None]
  - NAUSEA [None]
  - THERAPEUTIC RESPONSE DECREASED [None]
